FAERS Safety Report 9720675 (Version 1)
Quarter: 2013Q4

REPORT INFORMATION
  Report Type: Spontaneous
  Country: GB (occurrence: GB)
  Receive Date: 20131129
  Receipt Date: 20131129
  Transmission Date: 20140711
  Serious: Yes (Other)
  Sender: FDA-Public Use
  Company Number: PHFR2013GB006776

PATIENT
  Sex: Female

DRUGS (1)
  1. CLOZARIL [Suspect]
     Indication: SCHIZOPHRENIA
     Dosage: 275 MG,
     Route: 048
     Dates: start: 20131008

REACTIONS (5)
  - Asthma [Unknown]
  - Dyspnoea [Unknown]
  - Weight increased [Unknown]
  - Tachycardia [Unknown]
  - Electrocardiogram T wave abnormal [Unknown]
